FAERS Safety Report 6853334-5 (Version None)
Quarter: 2010Q3

REPORT INFORMATION
  Report Type: 
  Country: None (occurrence: None)
  Receive Date: 20100717
  Receipt Date: 20071205
  Transmission Date: 20110219
  Serious: Yes (Other)
  Sender: FDA-Public Use
  Company Number: US-PFIZER INC-2007103840

PATIENT
  Sex: Female

DRUGS (2)
  1. CHANTIX [Suspect]
     Indication: SMOKING CESSATION THERAPY
     Dates: start: 20071101, end: 20071204
  2. VITAMINS [Concomitant]

REACTIONS (9)
  - ANGER [None]
  - DEPRESSION [None]
  - DRUG DEPENDENCE [None]
  - FEELING ABNORMAL [None]
  - FEELING JITTERY [None]
  - MENTAL DISORDER [None]
  - PAIN [None]
  - SUICIDAL IDEATION [None]
  - URINARY RETENTION [None]
